FAERS Safety Report 21698881 (Version 2)
Quarter: 2023Q1

REPORT INFORMATION
  Report Type: Report from Study
  Country: US (occurrence: US)
  Receive Date: 20221208
  Receipt Date: 20230105
  Transmission Date: 20230417
  Serious: No
  Sender: FDA-Public Use
  Company Number: US-ABBVIE-4193130

PATIENT
  Sex: Female

DRUGS (3)
  1. HUMIRA [Suspect]
     Active Substance: ADALIMUMAB
     Indication: Psoriatic arthropathy
     Dosage: CITRATE FREE
     Route: 058
  2. NAPROXEN [Concomitant]
     Active Substance: NAPROXEN
     Indication: Product used for unknown indication
  3. TREMFYA [Concomitant]
     Active Substance: GUSELKUMAB
     Indication: Product used for unknown indication

REACTIONS (8)
  - General symptom [Unknown]
  - Therapeutic product effect decreased [Unknown]
  - Joint swelling [Unknown]
  - Swelling [Unknown]
  - COVID-19 [Recovering/Resolving]
  - Musculoskeletal stiffness [Unknown]
  - Cutaneous symptom [Unknown]
  - Hypoaesthesia [Unknown]
